FAERS Safety Report 8614294-X (Version None)
Quarter: 2012Q3

REPORT INFORMATION
  Report Type: 
  Country: None (occurrence: None)
  Receive Date: 20120813
  Receipt Date: 20120813
  Transmission Date: 20120928
  Serious: Yes (Hospitalization)
  Sender: FDA-Public Use
  Company Number: None

PATIENT
  Age: 88 Year
  Sex: Male

DRUGS (1)
  1. REVLIMID [Suspect]
     Indication: MULTIPLE MYELOMA
     Dosage: REVLIMID 25 MG DAILY X21D/28D ORALLY
     Route: 048
     Dates: start: 20120501, end: 20120701

REACTIONS (8)
  - ASTHENIA [None]
  - LETHARGY [None]
  - UROSEPSIS [None]
  - CULTURE URINE POSITIVE [None]
  - ATRIAL FIBRILLATION [None]
  - HYPOTENSION [None]
  - SEPSIS [None]
  - ESCHERICHIA INFECTION [None]
